FAERS Safety Report 7824472-5 (Version None)
Quarter: 2011Q4

REPORT INFORMATION
  Report Type: 
  Country: None (occurrence: None)
  Receive Date: 20111019
  Receipt Date: 20111011
  Transmission Date: 20120403
  Serious: Yes (Other)
  Sender: FDA-Public Use
  Company Number: TW-JNJFOC-20111006456

PATIENT
  Age: 59 Year
  Sex: Male
  Weight: 54.9 kg

DRUGS (2)
  1. CODEINE SULFATE [Suspect]
     Indication: MUSCULOSKELETAL PAIN
     Dosage: 15 MG 3 IN ONE DAY
     Route: 048
     Dates: start: 20110214, end: 20110217
  2. ULTRACET [Suspect]
     Indication: MUSCULOSKELETAL PAIN
     Dosage: TRAMADOL 37.5MG AND ACETAMINOPHEN 375MG, 1 TABLET EVERY 8 HOURS
     Route: 048
     Dates: start: 20110214, end: 20110217

REACTIONS (2)
  - SOMNAMBULISM [None]
  - DELIRIUM [None]
